FAERS Safety Report 24157111 (Version 2)
Quarter: 2024Q4

REPORT INFORMATION
  Report Type: Spontaneous
  Country: US (occurrence: US)
  Receive Date: 20240731
  Receipt Date: 20241203
  Transmission Date: 20250115
  Serious: No
  Sender: PFIZER
  Company Number: US-PFIZER INC-PV202400098512

PATIENT
  Age: 70 Year
  Sex: Male

DRUGS (1)
  1. BOSULIF [Suspect]
     Active Substance: BOSUTINIB MONOHYDRATE
     Indication: Myeloid leukaemia
     Dosage: 400 MG, 1X/DAY TAKE ONE (1) TABLET BY MOUTH ONCE DAILY WITH FOOD
     Route: 048

REACTIONS (2)
  - Vomiting [Unknown]
  - Wrong strength [Unknown]
